FAERS Safety Report 6290736-2 (Version None)
Quarter: 2009Q3

REPORT INFORMATION
  Report Type: 
  Country: None (occurrence: None)
  Receive Date: 20090730
  Receipt Date: 20090723
  Transmission Date: 20100115
  Serious: Yes (Other)
  Sender: FDA-Public Use
  Company Number: US-AVENTIS-200916490US

PATIENT
  Sex: Female

DRUGS (9)
  1. LANTUS [Suspect]
     Dosage: DOSE: 45 UNITS IN AM AND 20 UNITS IN PM
     Route: 058
  2. OPTICLIK (INSULIN INJECTION PEN) [Suspect]
  3. LIPITOR [Concomitant]
  4. ESTROGEN [Concomitant]
     Dosage: DOSE: 1 TABLET
  5. HYDROCHLOROTHIAZIDE [Concomitant]
  6. ASPIRIN [Concomitant]
  7. METOPROLOL TARTRATE [Concomitant]
     Dosage: DOSE: 1 TABLET
  8. MULTI-VITAMINS [Concomitant]
     Dosage: DOSE: 1 TAB
  9. OSCAL                              /00108001/ [Concomitant]
     Dosage: DOSE: 1 TAB

REACTIONS (1)
  - CORNEAL TRANSPLANT [None]
